FAERS Safety Report 7238854-6 (Version None)
Quarter: 2011Q1

REPORT INFORMATION
  Report Type: 
  Country: None (occurrence: None)
  Receive Date: 20110121
  Receipt Date: 20110112
  Transmission Date: 20110831
  Serious: Yes (Other)
  Sender: FDA-Public Use
  Company Number: PHHY2011BR03032

PATIENT
  Sex: Male
  Weight: 80 kg

DRUGS (1)
  1. FORASEQ [Suspect]
     Indication: BRONCHITIS
     Dosage: 2 TIMES DAILY
     Dates: start: 20100901

REACTIONS (1)
  - TRAUMATIC LUNG INJURY [None]
